FAERS Safety Report 18293868 (Version 2)
Quarter: 2020Q4

REPORT INFORMATION
  Report Type: Other
  Country: US (occurrence: US)
  Receive Date: 20200921
  Receipt Date: 20201221
  Transmission Date: 20210113
  Serious: No
  Sender: FDA-Public Use
  Company Number: US-ACORDA-ACO_166175_2020

PATIENT
  Sex: Male

DRUGS (2)
  1. INBRIJA [Suspect]
     Active Substance: LEVODOPA
     Indication: PARKINSON^S DISEASE
     Dosage: 84 MILLIGRAM, PRN, NOT TO EXCEED 5 DOSES PER DAY
     Dates: start: 202009
  2. INBRIJA [Suspect]
     Active Substance: LEVODOPA
     Indication: ON AND OFF PHENOMENON

REACTIONS (13)
  - Drug effect less than expected [Unknown]
  - Device difficult to use [Unknown]
  - Therapeutic product effect variable [Unknown]
  - Product residue present [Unknown]
  - Cough [Unknown]
  - Device issue [Unknown]
  - Product packaging difficult to open [Unknown]
  - Stress [Unknown]
  - Product storage error [Unknown]
  - Wrong technique in device usage process [Unknown]
  - Tremor [Unknown]
  - Anxiety [Unknown]
  - Musculoskeletal stiffness [Unknown]
